FAERS Safety Report 8783176 (Version 2)
Quarter: 2012Q4

REPORT INFORMATION
  Report Type: Report from Study
  Country: PL (occurrence: PL)
  Receive Date: 20120913
  Receipt Date: 20120928
  Transmission Date: 20130627
  Serious: Yes (Hospitalization)
  Sender: FDA-Public Use
  Company Number: PL-ROCHE-1122824

PATIENT
  Age: 3 Year
  Sex: Male
  Weight: 14.2 kg

DRUGS (9)
  1. AVASTIN [Suspect]
     Indication: NEOPLASM MALIGNANT
     Route: 065
     Dates: start: 20120814
  2. IFOSFAMIDE [Suspect]
     Indication: NEOPLASM MALIGNANT
     Route: 042
     Dates: start: 20120724
  3. IFOSFAMIDE [Suspect]
     Dosage: Last dose prior to SAE:15/Aug/2012
     Route: 042
     Dates: start: 20120814
  4. DOXORUBICIN [Suspect]
     Indication: NEOPLASM MALIGNANT
     Route: 042
     Dates: start: 20120724
  5. DOXORUBICIN [Suspect]
     Dosage: Last dose prior to SAE: 15/Aug/2012
     Route: 042
     Dates: start: 20120814
  6. DACTINOMYCIN [Suspect]
     Indication: NEOPLASM MALIGNANT
     Dosage: d
     Route: 042
     Dates: start: 20120724
  7. DACTINOMYCIN [Suspect]
     Dosage: Last dose prior to SAE:14/Aug/2012
     Route: 042
     Dates: start: 20120814
  8. VINCRISTIN [Suspect]
     Indication: NEOPLASM MALIGNANT
  9. METAMIZOL [Concomitant]
     Route: 065
     Dates: start: 20120829

REACTIONS (2)
  - Eyelid oedema [Recovered/Resolved]
  - Anaemia [Recovered/Resolved]
